FAERS Safety Report 7539705-2 (Version None)
Quarter: 2011Q2

REPORT INFORMATION
  Report Type: 
  Country: None (occurrence: None)
  Receive Date: 20110610
  Receipt Date: 20110606
  Transmission Date: 20111010
  Serious: Yes (Other)
  Sender: FDA-Public Use
  Company Number: US-PFIZER INC-2009232858

PATIENT
  Sex: Female

DRUGS (2)
  1. CARDURA [Suspect]
     Dosage: UNK
  2. LYRICA [Suspect]
     Dosage: 75 MG, UNK

REACTIONS (2)
  - HYPOACUSIS [None]
  - PANCREATITIS [None]
